FAERS Safety Report 6307042-X (Version None)
Quarter: 2009Q3

REPORT INFORMATION
  Report Type: 
  Country: None (occurrence: None)
  Receive Date: 20090812
  Receipt Date: 20090803
  Transmission Date: 20100115
  Serious: Yes (Hospitalization)
  Sender: FDA-Public Use
  Company Number: PHHY2009FR32540

PATIENT
  Sex: Male

DRUGS (4)
  1. TEGRETOL [Suspect]
     Indication: EPILEPSY
     Dosage: 600 MG DAILY
  2. VALPROATE SODIUM [Interacting]
     Dosage: UNK
     Dates: start: 20081101
  3. DEPAKENE [Interacting]
     Dosage: 500 MG, BID
     Dates: end: 20080101
  4. DEPAKENE [Interacting]
     Dosage: UNK

REACTIONS (6)
  - ANTICONVULSANT DRUG LEVEL DECREASED [None]
  - FALL [None]
  - GRAND MAL CONVULSION [None]
  - HEADACHE [None]
  - LOSS OF CONSCIOUSNESS [None]
  - MEDICATION RESIDUE [None]
